FAERS Safety Report 7402407-7 (Version None)
Quarter: 2011Q2

REPORT INFORMATION
  Report Type: 
  Country: None (occurrence: None)
  Receive Date: 20110408
  Receipt Date: 20110404
  Transmission Date: 20111010
  Serious: Yes (Death, Hospitalization)
  Sender: FDA-Public Use
  Company Number: AR-BRISTOL-MYERS SQUIBB COMPANY-15531270

PATIENT
  Age: 57 Year
  Sex: Female

DRUGS (8)
  1. AMIODARONE [Suspect]
  2. IXEMPRA KIT [Suspect]
     Indication: BREAST CANCER
     Dates: start: 20110107
  3. ASPIRIN [Suspect]
     Indication: CARDIAC FAILURE
     Dates: start: 20100101
  4. CARVEDILOL [Suspect]
  5. PAROXETINE [Suspect]
  6. CLONAZEPAM [Suspect]
     Indication: DEPRESSION
     Dates: start: 20090101
  7. LOSARTAN [Suspect]
     Indication: HYPERTENSION
     Dates: start: 20090101
  8. FUROSEMIDE [Suspect]

REACTIONS (3)
  - CARDIAC FAILURE [None]
  - SEPSIS [None]
  - FEBRILE NEUTROPENIA [None]
